FAERS Safety Report 10149409 (Version 1)
Quarter: 2014Q2

REPORT INFORMATION
  Report Type: Spontaneous
  Country: US (occurrence: None)
  Receive Date: 20140430
  Receipt Date: 20140430
  Transmission Date: 20141212
  Serious: Yes (Hospitalization)
  Sender: FDA-Public Use
  Company Number: None

PATIENT
  Age: 48 Year
  Sex: Female

DRUGS (4)
  1. REBIF [Suspect]
     Indication: PRODUCT USED FOR UNKNOWN INDICATION
     Dosage: 3 TIMES A WEEK
     Route: 058
     Dates: start: 20140208
  2. SYNTHROID [Concomitant]
  3. BACLOFEN [Concomitant]
  4. MULTIVITAMIN [Concomitant]

REACTIONS (1)
  - Blindness [None]
